FAERS Safety Report 5920982-6 (Version None)
Quarter: 2008Q4

REPORT INFORMATION
  Report Type: 
  Country: None (occurrence: None)
  Receive Date: 20081014
  Receipt Date: 20080925
  Transmission Date: 20090506
  Serious: Yes (Other)
  Sender: FDA-Public Use
  Company Number: 2008PL000135

PATIENT
  Age: 61 Year
  Sex: Female

DRUGS (5)
  1. AZATHIOPRINE [Suspect]
     Indication: DERMATITIS ATOPIC
     Dosage: 150 MG; QD; PO
     Route: 048
     Dates: start: 20060801
  2. AZATHIOPRINE [Suspect]
     Indication: PSORIASIS
     Dosage: 150 MG; QD; PO
     Route: 048
     Dates: start: 20060801
  3. INFLIXIMAB (INFLIXIMAB) [Suspect]
     Indication: DERMATITIS ATOPIC
     Dosage: 400 MG;
     Dates: start: 20060801
  4. INFLIXIMAB (INFLIXIMAB) [Suspect]
     Indication: PSORIASIS
     Dosage: 400 MG;
     Dates: start: 20060801
  5. DECORTIN H [Concomitant]

REACTIONS (6)
  - ALVEOLITIS [None]
  - INTERSTITIAL LUNG DISEASE [None]
  - LUNG DISORDER [None]
  - PLETHYSMOGRAPHY [None]
  - PULMONARY FIBROSIS [None]
  - RESPIRATORY FAILURE [None]
